FAERS Safety Report 5828022-4 (Version None)
Quarter: 2008Q3

REPORT INFORMATION
  Report Type: 
  Country: None (occurrence: None)
  Receive Date: 20080729
  Receipt Date: 20080716
  Transmission Date: 20090109
  Serious: No
  Sender: FDA-Public Use
  Company Number: 2008-180770-NL

PATIENT
  Sex: Female

DRUGS (5)
  1. MIRTAZAPINE [Suspect]
     Dosage: 30 MG; ORAL
     Route: 048
  2. CARBAMAZEPINE [Concomitant]
  3. PROPRANOLOL HYDROCHLORIDE [Concomitant]
  4. MIDAZOLAM HCL [Concomitant]
  5. LORAZEPAM [Concomitant]

REACTIONS (1)
  - INAPPROPRIATE ANTIDIURETIC HORMONE SECRETION [None]
